FAERS Safety Report 14670264 (Version 3)
Quarter: 2019Q4

REPORT INFORMATION
  Report Type: Spontaneous
  Country: GB (occurrence: GB)
  Receive Date: 20180322
  Receipt Date: 20191120
  Transmission Date: 20200122
  Serious: Yes (Other)
  Sender: FDA-Public Use
  Company Number: GB-TEVA-2018-GB-873511

PATIENT
  Age: 55 Year
  Sex: Male
  Weight: 77 kg

DRUGS (14)
  1. ALENDRONIC ACID [Concomitant]
     Active Substance: ALENDRONIC ACID
     Route: 065
     Dates: start: 20171019
  2. LOPERAMIDE [Concomitant]
     Active Substance: LOPERAMIDE
     Dosage: USE AS DIRECTED
     Route: 065
     Dates: start: 20171019
  3. EPADERM [Concomitant]
     Active Substance: MINERAL OIL\PETROLATUM\WAX, EMULSIFYING
     Dosage: USE AS DIRECTED
     Route: 065
     Dates: start: 20141021
  4. ADCAL [Concomitant]
     Route: 065
     Dates: start: 20171006
  5. NEBIDO [Concomitant]
     Active Substance: TESTOSTERONE UNDECANOATE
     Dosage: USE AS DIRECTED BY SPECIALIST
     Route: 065
     Dates: start: 20170914
  6. OMEPRAZOLE. [Concomitant]
     Active Substance: OMEPRAZOLE
     Route: 065
     Dates: start: 20171019
  7. SODIUM HYDROGEN CARBONATE [Concomitant]
     Active Substance: SODIUM BICARBONATE
     Route: 065
     Dates: start: 20171019
  8. TADALAFIL. [Concomitant]
     Active Substance: TADALAFIL
     Route: 065
     Dates: start: 20171019
  9. METOCLOPRAMIDE. [Concomitant]
     Active Substance: METOCLOPRAMIDE
     Dosage: USE AS DIRECTED
     Route: 065
     Dates: start: 20160525
  10. TRIMETHOPRIM. [Suspect]
     Active Substance: TRIMETHOPRIM
     Indication: URINARY TRACT INFECTION
     Route: 065
     Dates: start: 20180124, end: 20180127
  11. LEVOTHYROXINE. [Concomitant]
     Active Substance: LEVOTHYROXINE
     Route: 065
     Dates: start: 20171019
  12. DOSULEPIN HYDROCHLORIDE [Concomitant]
     Active Substance: DOTHIEPIN HYDROCHLORIDE
     Route: 065
     Dates: start: 20171019
  13. HYDROCORTISONE. [Concomitant]
     Active Substance: HYDROCORTISONE
     Dosage: USE AS DIRECTED
     Route: 065
     Dates: start: 20150103
  14. FLUOXETINE [Concomitant]
     Active Substance: FLUOXETINE HYDROCHLORIDE
     Route: 065
     Dates: start: 20171019

REACTIONS (3)
  - Lip blister [Recovered/Resolved]
  - Oral mucosal blistering [Recovered/Resolved]
  - Tongue blistering [Recovered/Resolved]

NARRATIVE: CASE EVENT DATE: 20180126
